FAERS Safety Report 11797129 (Version 1)
Quarter: 2015Q4

REPORT INFORMATION
  Report Type: Report from Study
  Country: US (occurrence: US)
  Receive Date: 20151203
  Receipt Date: 20151203
  Transmission Date: 20160305
  Serious: Yes (Other)
  Sender: FDA-Public Use
  Company Number: US-SA-2015SA201666

PATIENT
  Age: 25 Year
  Sex: Female

DRUGS (1)
  1. LEMTRADA [Suspect]
     Active Substance: ALEMTUZUMAB
     Route: 041
     Dates: start: 201505

REACTIONS (4)
  - Headache [Unknown]
  - Heart rate decreased [Unknown]
  - Artery dissection [Unknown]
  - Nausea [Unknown]

NARRATIVE: CASE EVENT DATE: 2015
